FAERS Safety Report 9338873 (Version 1)
Quarter: 2013Q2

REPORT INFORMATION
  Report Type: Spontaneous
  Country: US (occurrence: None)
  Receive Date: 20130606
  Receipt Date: 20130606
  Transmission Date: 20140414
  Serious: No
  Sender: FDA-Public Use
  Company Number: None

PATIENT
  Age: 53 Year
  Sex: Female

DRUGS (2)
  1. SYLATRON [Suspect]
     Route: 058
     Dates: start: 20130531, end: 20130531
  2. SYLATRON [Suspect]
     Route: 058
     Dates: start: 20130531, end: 20130531

REACTIONS (4)
  - Headache [None]
  - Pain [None]
  - Movement disorder [None]
  - Decreased appetite [None]
